FAERS Safety Report 5147648-7 (Version None)
Quarter: 2006Q4

REPORT INFORMATION
  Report Type: 
  Country: None (occurrence: None)
  Receive Date: 20060915
  Receipt Date: 20060222
  Transmission Date: 20070319
  Serious: Yes (Other)
  Sender: FDA-Public Use
  Company Number: S06-USA-00631-01

PATIENT
  Age: 18 Year
  Sex: Female

DRUGS (4)
  1. CITALOPRAM [Suspect]
     Indication: PANIC ATTACK
     Dosage: SEE IMAGE
     Route: 048
     Dates: end: 20030822
  2. CITALOPRAM [Suspect]
     Indication: PANIC ATTACK
     Dosage: SEE IMAGE
     Route: 048
     Dates: start: 20030823, end: 20060101
  3. CITALOPRAM [Suspect]
     Indication: PANIC ATTACK
     Dosage: SEE IMAGE
     Route: 048
     Dates: start: 20010101
  4. AMPHETAMINE MIXED SALTS [Concomitant]

REACTIONS (2)
  - INFLUENZA [None]
  - MYOCARDIAL INFARCTION [None]
